FAERS Safety Report 4470714-6 (Version None)
Quarter: 2004Q4

REPORT INFORMATION
  Report Type: 
  Country: None (occurrence: None)
  Receive Date: 20041006
  Receipt Date: 20040924
  Transmission Date: 20050328
  Serious: No
  Sender: FDA-Public Use
  Company Number: 2004UW20185

PATIENT
  Age: 50 Year
  Sex: Female

DRUGS (3)
  1. SEROQUEL [Suspect]
  2. CLOZARIL [Suspect]
     Dosage: 575 MG DAILY PO
     Route: 048
  3. VALPROIC ACID [Suspect]

REACTIONS (2)
  - LEUKOPENIA [None]
  - NEUTROPENIA [None]
